FAERS Safety Report 15707912 (Version 1)
Quarter: 2018Q4

REPORT INFORMATION
  Report Type: Spontaneous
  Country: US (occurrence: US)
  Receive Date: 20181211
  Receipt Date: 20181211
  Transmission Date: 20190205
  Serious: No
  Sender: FDA-Public Use
  Company Number: US-DRREDDYS-USA/USA/18/0105733

PATIENT
  Sex: Female

DRUGS (1)
  1. DOANS EXTRA STRENGTH [Suspect]
     Active Substance: MAGNESIUM SALICYLATE
     Indication: BACK PAIN
     Dosage: DOAN^S EXTRA STRENGTH CAPLETS-MAGNESIUM SALICYLATE TETRAHYDRATE 580MG 24CT
     Route: 048

REACTIONS (1)
  - Drug ineffective [Unknown]
